FAERS Safety Report 8904094 (Version 1)
Quarter: 2012Q4

REPORT INFORMATION
  Report Type: 
  Country: SE (occurrence: SE)
  Receive Date: 20121112
  Receipt Date: 20121112
  Transmission Date: 20130627
  Serious: Yes (Hospitalization)
  Sender: FDA-Public Use
  Company Number: SE-PFIZER INC-2012278374

PATIENT
  Age: 35 Year
  Sex: Female
  Weight: 61 kg

DRUGS (18)
  1. GENOTROPIN [Suspect]
     Dosage: 1.0 mg, 1x/day, 7 injections/week
     Route: 058
     Dates: start: 20081219
  2. HYDROCORTISONE [Concomitant]
     Indication: ACTH DECREASED
     Dosage: UNK
     Dates: start: 19900115
  3. LEVOTHYROXINE [Concomitant]
     Indication: THYROID DISORDER
     Dosage: UNK
     Dates: start: 19900115
  4. LEVOTHYROXINE [Concomitant]
     Indication: PRIMARY HYPOTHYROIDISM
  5. CALCICHEW [Concomitant]
     Indication: OSTEOPOROSIS
     Dosage: UNK
     Dates: start: 20010123
  6. SONATA [Concomitant]
     Indication: INSOMNIA
     Dosage: UNK
     Dates: start: 20040224
  7. FLUNITRAZEPAM [Concomitant]
     Indication: INSOMNIA
     Dosage: UNK
     Dates: start: 20071127
  8. OXASCAND [Concomitant]
     Indication: ANXIOLYTIC THERAPY
     Dosage: UNK
     Dates: start: 20071127
  9. ATARAX [Concomitant]
     Indication: SEDATIVE THERAPY
     Dosage: UNK
     Dates: start: 20080507
  10. CITODON [Concomitant]
     Indication: ARTHRALGIA
     Dosage: UNK
     Dates: start: 20080507
  11. LORATADINE [Concomitant]
     Indication: ALLERGY
     Dosage: UNK
     Dates: start: 20080507
  12. RANITIDINE [Concomitant]
     Indication: GASTRITIS
     Dosage: UNK
     Dates: start: 20080507
  13. TRISEKVENS [Concomitant]
     Indication: LUTEINISING HORMONE DECREASED
     Dosage: UNK
     Dates: start: 20080507
  14. TRISEKVENS [Concomitant]
     Indication: FOLLICLE STIMULATING HORMONE DECREASED
  15. TRISEKVENS [Concomitant]
     Indication: HYPOGONADISM FEMALE
  16. EFFEXOR DEPOT [Concomitant]
     Indication: DEPRESSION
     Dosage: UNK
     Dates: start: 20080507
  17. OMEPRAZOLE [Concomitant]
     Indication: GASTRITIS
     Dosage: UNK
     Dates: start: 20081115
  18. OMEPRAZOLE [Concomitant]
     Indication: DUODENITIS

REACTIONS (1)
  - Depression [Unknown]
